FAERS Safety Report 19402114 (Version 2)
Quarter: 2021Q4

REPORT INFORMATION
  Report Type: Report from Study
  Country: US (occurrence: US)
  Receive Date: 20210611
  Receipt Date: 20211020
  Transmission Date: 20220303
  Serious: Yes (Hospitalization)
  Sender: FDA-Public Use
  Company Number: US-INSMED, INC.-2021-08111-US

PATIENT
  Sex: Female

DRUGS (1)
  1. ARIKAYCE [Suspect]
     Active Substance: AMIKACIN
     Indication: Mycobacterial infection
     Dosage: 590 MILLIGRAM, QD
     Route: 055
     Dates: start: 202103, end: 20210425

REACTIONS (14)
  - Hospitalisation [Unknown]
  - Dementia Alzheimer^s type [Unknown]
  - Blood sodium decreased [Unknown]
  - Cerebrovascular accident [Unknown]
  - Abnormal behaviour [Unknown]
  - Unresponsive to stimuli [Unknown]
  - Hypophagia [Unknown]
  - Muscular weakness [Unknown]
  - Asthenia [Unknown]
  - Malaise [Unknown]
  - Urinary tract infection [Unknown]
  - Rehabilitation therapy [Unknown]
  - Cough [Not Recovered/Not Resolved]
  - Therapy interrupted [Unknown]

NARRATIVE: CASE EVENT DATE: 20210101
